FAERS Safety Report 6119233-1 (Version None)
Quarter: 2009Q1

REPORT INFORMATION
  Report Type: 
  Country: None (occurrence: None)
  Receive Date: 20090316
  Receipt Date: 20090303
  Transmission Date: 20090719
  Serious: Yes (Other)
  Sender: FDA-Public Use
  Company Number: US-ROCHE-615481

PATIENT
  Sex: Male
  Weight: 90.4 kg

DRUGS (2)
  1. PEG-INTERFERON A-2A (RO 25-8310) [Suspect]
     Indication: HEPATITIS C
     Dosage: FORM: PFS (PRE FILLED SYRINGE)
     Route: 058
     Dates: start: 20080719, end: 20090110
  2. RIBAVIRIN [Suspect]
     Indication: HEPATITIS C
     Dosage: DIVIDED DOSES
     Route: 048
     Dates: start: 20080719, end: 20090110

REACTIONS (3)
  - COUGH [None]
  - NASOPHARYNGITIS [None]
  - SMALL CELL LUNG CANCER STAGE UNSPECIFIED [None]
